FAERS Safety Report 7871387-2 (Version None)
Quarter: 2011Q4

REPORT INFORMATION
  Report Type: 
  Country: None (occurrence: None)
  Receive Date: 20111027
  Receipt Date: 20111013
  Transmission Date: 20120403
  Serious: Yes (Congenital Anomaly)
  Sender: FDA-Public Use
  Company Number: 2011MA015149

PATIENT
  Sex: Female

DRUGS (5)
  1. FLUOXETINE [Suspect]
     Indication: FOETAL EXPOSURE DURING PREGNANCY
     Dosage: TRPL
     Route: 064
     Dates: start: 20100128, end: 20110819
  2. LEVOTHYROXINE SODIUM [Concomitant]
  3. FERROUS FUMARATE [Concomitant]
  4. SULFASALAZINE [Concomitant]
  5. QVAR 40 [Concomitant]

REACTIONS (2)
  - CLEFT PALATE [None]
  - FOETAL EXPOSURE DURING PREGNANCY [None]
